FAERS Safety Report 16608660 (Version 2)
Quarter: 2019Q3

REPORT INFORMATION
  Report Type: Spontaneous
  Country: US (occurrence: US)
  Receive Date: 20190722
  Receipt Date: 20190920
  Transmission Date: 20191004
  Serious: No
  Sender: FDA-Public Use
  Company Number: US-PFIZER INC-2017505458

PATIENT
  Age: 42 Year
  Sex: Female

DRUGS (4)
  1. LYRICA [Suspect]
     Active Substance: PREGABALIN
     Indication: POST HERPETIC NEURALGIA
     Dosage: 100 MG, THREE TIMES A DAY
     Route: 048
  2. LYRICA [Suspect]
     Active Substance: PREGABALIN
     Dosage: 500 MG, DAILY (100 MG IN THE MORNING, 200 MG AT 3 PM AND 200 MG AT 11 PM)
     Dates: start: 20180802
  3. BUPROPION. [Concomitant]
     Active Substance: BUPROPION
     Indication: DEPRESSION
     Dosage: 75 MG, DAILY (1 PO (ORAL) Q (DAILY) )
  4. ACYCLOVIR. [Concomitant]
     Active Substance: ACYCLOVIR
     Indication: HERPES SIMPLEX MENINGOMYELITIS
     Dosage: 800 MG, 3X/DAY (1 PO (ORAL) Q (DAILY) 8 HOURS)

REACTIONS (3)
  - Mood swings [Unknown]
  - Pruritus [Unknown]
  - Pyrexia [Unknown]
